FAERS Safety Report 5193034-3 (Version None)
Quarter: 2006Q4

REPORT INFORMATION
  Report Type: 
  Country: None (occurrence: None)
  Receive Date: 20061228
  Receipt Date: 20060306
  Transmission Date: 20070319
  Serious: No
  Sender: FDA-Public Use
  Company Number: US-GLAXOSMITHKLINE-A0596315A

PATIENT
  Sex: Male

DRUGS (3)
  1. AVODART [Suspect]
     Indication: BENIGN PROSTATIC HYPERPLASIA
     Route: 048
  2. TRAVATAN [Concomitant]
  3. TIMOLOL MALEATE [Concomitant]

REACTIONS (2)
  - PENILE DISCHARGE [None]
  - RECTAL DISCHARGE [None]
